FAERS Safety Report 5140667-6 (Version None)
Quarter: 2006Q4

REPORT INFORMATION
  Report Type: 
  Country: None (occurrence: None)
  Receive Date: 20061025
  Receipt Date: 20061016
  Transmission Date: 20070319
  Serious: Yes (Hospitalization)
  Sender: FDA-Public Use
  Company Number: 2006120801

PATIENT
  Age: 53 Year
  Sex: Male

DRUGS (11)
  1. DALTEPARIN SODIUM [Suspect]
     Dosage: SEE IMAGE
     Route: 058
     Dates: start: 20060701, end: 20060701
  2. DALTEPARIN SODIUM [Suspect]
     Dosage: SEE IMAGE
     Route: 058
     Dates: start: 20060721, end: 20060722
  3. REOPRO [Suspect]
     Dosage: SEE IMAGE
     Route: 042
     Dates: start: 20060715, end: 20060715
  4. REOPRO [Suspect]
     Dosage: SEE IMAGE
     Route: 042
     Dates: start: 20060721, end: 20060721
  5. ENOXAPARIN SODIUM [Suspect]
     Dosage: 160 MG (80 MG,2 IN 1 D), SUBCUTANEOUS
     Route: 058
     Dates: start: 20060715, end: 20060701
  6. NPH INSULIN [Concomitant]
  7. GLUCOPHAGE [Concomitant]
  8. RAMIPRIL [Concomitant]
  9. METOPROLOL TARTRATE [Concomitant]
  10. PLAVIX [Concomitant]
  11. ACETYLSALICYLIC ACID SRT [Concomitant]

REACTIONS (6)
  - AIR EMBOLISM [None]
  - ATRIAL FIBRILLATION [None]
  - ELECTROCARDIOGRAM ST SEGMENT ELEVATION [None]
  - HYPOTONIA [None]
  - TACHYCARDIA [None]
  - THROMBOCYTOPENIA [None]
